FAERS Safety Report 9055080 (Version 2)
Quarter: 2013Q1

REPORT INFORMATION
  Report Type: Spontaneous
  Country: FR (occurrence: FR)
  Receive Date: 20130206
  Receipt Date: 20130324
  Transmission Date: 20140127
  Serious: Yes (Other)
  Sender: FDA-Public Use
  Company Number: FR-JNJFOC-20130115311

PATIENT
  Sex: Male

DRUGS (7)
  1. XARELTO [Suspect]
     Indication: CEREBROVASCULAR ACCIDENT PROPHYLAXIS
     Route: 048
     Dates: start: 20121029, end: 20121227
  2. XARELTO [Suspect]
     Indication: ATRIAL FIBRILLATION
     Route: 048
     Dates: start: 20121029, end: 20121227
  3. LASILIX [Concomitant]
     Route: 065
  4. HEMIGOXINE NATIVELLE [Concomitant]
     Indication: ATRIAL FIBRILLATION
     Route: 048
     Dates: start: 20121025, end: 20121108
  5. AMIODARONE [Concomitant]
     Route: 065
  6. CARDENSIEL [Concomitant]
     Route: 065
  7. TRIATEC COMP [Concomitant]
     Route: 065

REACTIONS (2)
  - Confusional state [Recovered/Resolved]
  - Hallucination, visual [Recovered/Resolved]
